FAERS Safety Report 6070016-0 (Version None)
Quarter: 2009Q1

REPORT INFORMATION
  Report Type: 
  Country: None (occurrence: None)
  Receive Date: 20090209
  Receipt Date: 20090129
  Transmission Date: 20090719
  Serious: Yes (Hospitalization)
  Sender: FDA-Public Use
  Company Number: PHHY2009JP03369

PATIENT
  Age: 75 Year
  Sex: Male

DRUGS (13)
  1. SALAGEN [Suspect]
     Indication: DRY MOUTH
     Dosage: 5 MG, TID
     Route: 048
     Dates: start: 20081220, end: 20081224
  2. RHYTHMY [Concomitant]
     Dosage: 2MG
     Route: 048
     Dates: start: 20081108
  3. HYPEN [Concomitant]
     Indication: HYPOPHARYNGEAL CANCER
     Dosage: 400MG
     Route: 048
     Dates: start: 20081114
  4. CLARITHROMYCIN [Concomitant]
     Dosage: 400MG
     Route: 048
     Dates: start: 20081116, end: 20081230
  5. MUCOBULIN [Concomitant]
     Dosage: 45MG
     Route: 048
     Dates: start: 20081116, end: 20081230
  6. DUROTEP JANSSEN [Concomitant]
     Dosage: 0.7MG
     Route: 062
     Dates: start: 20081119
  7. ALLOID [Concomitant]
     Dosage: 50MG
     Route: 048
     Dates: start: 20081125
  8. CEPHARANTHIN [Concomitant]
     Dosage: 6MG
     Route: 048
     Dates: start: 20081220
  9. HARNAL [Concomitant]
     Dosage: 0.2 MG
     Route: 048
  10. OPALMON [Concomitant]
     Dosage: 30 MCG
     Route: 048
  11. LAC B [Concomitant]
     Dosage: 3 GM
     Route: 048
  12. FLAVITAN [Concomitant]
     Dosage: 15 MG
     Route: 048
  13. CAMOSTAT [Concomitant]
     Dosage: 300 MG
     Route: 048

REACTIONS (2)
  - HYPERHIDROSIS [None]
  - URINE OUTPUT DECREASED [None]
